FAERS Safety Report 8179680-3 (Version None)
Quarter: 2012Q1

REPORT INFORMATION
  Report Type: 
  Country: None (occurrence: None)
  Receive Date: 20120302
  Receipt Date: 20120229
  Transmission Date: 20120608
  Serious: No
  Sender: FDA-Public Use
  Company Number: US-BAYER-2012-020619

PATIENT
  Sex: Female
  Weight: 68 kg

DRUGS (9)
  1. SINGULAIR [Concomitant]
     Dosage: 10 MG, UNK
     Route: 048
  2. ENALAPRIL MALEATE [Concomitant]
     Dosage: 2.5 MG, UNK
     Route: 048
  3. VITAMIN D [Concomitant]
     Dosage: 5000 U, UNK
     Route: 048
  4. ALLEGRA [Concomitant]
     Dosage: 60 MG, UNK
     Route: 048
  5. RANITIDINE [Concomitant]
     Dosage: 75 MG, UNK
     Route: 048
  6. BETASERON [Suspect]
     Dosage: 0.25 MG, QOD
     Route: 058
     Dates: start: 20030101
  7. CYMBALTA [Concomitant]
     Dosage: 20 MG, UNK
     Route: 048
  8. CELEBREX [Concomitant]
     Dosage: 50 MG, UNK
     Route: 048
  9. NEURONTIN [Concomitant]
     Dosage: 100 MG, UNK
     Route: 048

REACTIONS (2)
  - INJECTION SITE RASH [None]
  - INJECTION SITE PAIN [None]
